APPROVED DRUG PRODUCT: AMIKACIN SULFATE
Active Ingredient: AMIKACIN SULFATE
Strength: EQ 250MG BASE/ML
Dosage Form/Route: INJECTABLE;INJECTION
Application: A218146 | Product #001 | TE Code: AP
Applicant: QILU PHARMACEUTICAL CO LTD
Approved: Mar 19, 2024 | RLD: No | RS: No | Type: RX